FAERS Safety Report 24045650 (Version 1)
Quarter: 2024Q3

REPORT INFORMATION
  Report Type: Spontaneous
  Country: US (occurrence: None)
  Receive Date: 20240702
  Receipt Date: 20240702
  Transmission Date: 20241017
  Serious: Yes (Hospitalization)
  Sender: Public
  Company Number: None

PATIENT
  Age: 36 Year
  Sex: Male
  Weight: 85 kg

DRUGS (6)
  1. BUPROPION [Suspect]
     Active Substance: BUPROPION
  2. ARIPIPRAZOLE [Concomitant]
     Active Substance: ARIPIPRAZOLE
     Dates: start: 20221118
  3. ATORVASTATIN [Concomitant]
     Active Substance: ATORVASTATIN
     Dates: start: 20240605
  4. BACLOFEN [Concomitant]
     Active Substance: BACLOFEN
     Dates: start: 20240416
  5. buprenorphine/suboxone 8/2mg film [Concomitant]
     Dates: start: 20221118
  6. GABAPENTIN [Concomitant]
     Active Substance: GABAPENTIN
     Dates: start: 20240513

REACTIONS (6)
  - Self-medication [None]
  - Abnormal behaviour [None]
  - Dysarthria [None]
  - Hyperhidrosis [None]
  - Seizure like phenomena [None]
  - Intentional product use issue [None]

NARRATIVE: CASE EVENT DATE: 20240610
